FAERS Safety Report 4609701-3 (Version None)
Quarter: 2005Q1

REPORT INFORMATION
  Report Type: 
  Country: None (occurrence: None)
  Receive Date: 20050314
  Receipt Date: 20050228
  Transmission Date: 20050727
  Serious: Yes (Other)
  Sender: FDA-Public Use
  Company Number: 2005EN000005

PATIENT
  Age: 37 Year
  Sex: Male

DRUGS (2)
  1. ABELCET [Suspect]
     Indication: CRYPTOCOCCOSIS
     Dosage: 5 MG/KG; QD
  2. ABELCET [Suspect]
     Indication: NERVOUS SYSTEM DISORDER
     Dosage: 5 MG/KG; QD

REACTIONS (6)
  - APNOEA [None]
  - BLINDNESS [None]
  - GLOSSITIS [None]
  - INTRACRANIAL PRESSURE INCREASED [None]
  - RESPIRATORY FAILURE [None]
  - TONGUE OEDEMA [None]
